FAERS Safety Report 14335352 (Version 2)
Quarter: 2018Q1

REPORT INFORMATION
  Report Type: Spontaneous
  Country: CZ (occurrence: CZ)
  Receive Date: 20171229
  Receipt Date: 20180209
  Transmission Date: 20180509
  Serious: Yes (Hospitalization)
  Sender: FDA-Public Use
  Company Number: CZ-ROCHE-2043917

PATIENT
  Age: 42 Year
  Sex: Male

DRUGS (9)
  1. CLONAZEPAM. [Suspect]
     Active Substance: CLONAZEPAM
     Indication: MUSCULOSKELETAL PAIN
  2. ATROPINE. [Concomitant]
     Active Substance: ATROPINE
     Route: 042
  3. MIDAZOLAM [Concomitant]
     Active Substance: MIDAZOLAM HYDROCHLORIDE
     Route: 042
  4. ANEXATE [Concomitant]
     Active Substance: FLUMAZENIL
     Route: 042
  5. CLONAZEPAM. [Suspect]
     Active Substance: CLONAZEPAM
     Indication: NECK PAIN
     Dosage: 2 X 2MG
     Route: 048
  6. DIAZEPAM. [Concomitant]
     Active Substance: DIAZEPAM
     Route: 042
  7. NALOXONE [Concomitant]
     Active Substance: NALOXONE
     Route: 042
  8. BACLOFEN. [Suspect]
     Active Substance: BACLOFEN
     Indication: NECK PAIN
     Route: 048
  9. BACLOFEN. [Suspect]
     Active Substance: BACLOFEN
     Indication: MUSCULOSKELETAL PAIN

REACTIONS (7)
  - Dysarthria [Unknown]
  - Coma [Recovered/Resolved]
  - Seizure [Unknown]
  - Headache [Unknown]
  - Somnolence [Unknown]
  - Altered state of consciousness [Recovering/Resolving]
  - Overdose [Unknown]
